FAERS Safety Report 14848338 (Version 1)
Quarter: 2018Q2

REPORT INFORMATION
  Report Type: Spontaneous
  Country: US (occurrence: US)
  Receive Date: 20180504
  Receipt Date: 20180504
  Transmission Date: 20180711
  Serious: Yes (Hospitalization, Other)
  Sender: FDA-Public Use
  Company Number: US-BRISTOL-MYERS SQUIBB COMPANY-BMS-2018-039577

PATIENT
  Age: 84 Year
  Sex: Male

DRUGS (3)
  1. ELIQUIS [Suspect]
     Active Substance: APIXABAN
     Indication: PRODUCT USED FOR UNKNOWN INDICATION
     Route: 065
  2. BREO ELLIPTA [Suspect]
     Active Substance: FLUTICASONE FUROATE\VILANTEROL TRIFENATATE
     Indication: CHRONIC OBSTRUCTIVE PULMONARY DISEASE
     Dosage: 1 DF, QD
     Route: 065
     Dates: start: 2014
  3. SPIRIVA [Concomitant]
     Active Substance: TIOTROPIUM BROMIDE MONOHYDRATE
     Indication: PRODUCT USED FOR UNKNOWN INDICATION
     Route: 065

REACTIONS (18)
  - Cough [Unknown]
  - Micturition disorder [Unknown]
  - Traumatic lung injury [Not Recovered/Not Resolved]
  - Haemoptysis [Recovered/Resolved]
  - Condition aggravated [Not Recovered/Not Resolved]
  - Dysphagia [Unknown]
  - Gastric disorder [Unknown]
  - Inflammation [Unknown]
  - Wound [Not Recovered/Not Resolved]
  - Aspiration [Unknown]
  - Pain [Not Recovered/Not Resolved]
  - Pneumonia [Recovered/Resolved with Sequelae]
  - Haemorrhage [Unknown]
  - Urinary tract infection [Unknown]
  - Pneumonia aspiration [Unknown]
  - Choking [Unknown]
  - Asthenia [Not Recovered/Not Resolved]
  - Gait inability [Unknown]

NARRATIVE: CASE EVENT DATE: 201712
